FAERS Safety Report 10025279 (Version 1)
Quarter: 2014Q1

REPORT INFORMATION
  Report Type: Spontaneous
  Country: US (occurrence: US)
  Receive Date: 20140320
  Receipt Date: 20140320
  Transmission Date: 20141002
  Serious: Yes (Other)
  Sender: FDA-Public Use
  Company Number: US-GLAXOSMITHKLINE-A1064550A

PATIENT
  Age: 31 Year
  Sex: Male

DRUGS (3)
  1. LAMICTAL [Suspect]
     Indication: CONVULSION
     Dosage: 100MG TWICE PER DAY
     Route: 048
  2. DEPAKOTE [Suspect]
     Indication: CONVULSION
     Dosage: 500MG THREE TIMES PER DAY
  3. NO CONCURRENT MEDICATION [Concomitant]

REACTIONS (3)
  - Convulsion [Recovering/Resolving]
  - Facial bones fracture [Recovering/Resolving]
  - Underdose [Unknown]
